FAERS Safety Report 17643109 (Version 1)
Quarter: 2020Q2

REPORT INFORMATION
  Report Type: Spontaneous
  Country: CA (occurrence: CA)
  Receive Date: 20200408
  Receipt Date: 20200408
  Transmission Date: 20200713
  Serious: Yes (Other)
  Sender: FDA-Public Use
  Company Number: CA-STRIDES ARCOLAB LIMITED-2020SP004459

PATIENT
  Age: 32 Year
  Sex: Female

DRUGS (6)
  1. ACETAZOLAMIDE. [Suspect]
     Active Substance: ACETAZOLAMIDE
     Dosage: 500 MILLIGRAM, BID
     Route: 065
  2. ACETAZOLAMIDE. [Suspect]
     Active Substance: ACETAZOLAMIDE
     Indication: HEADACHE
     Dosage: 500 MILLIGRAM, TID SIX YEARS BEFORE
     Route: 065
  3. TOPIRAMATE. [Suspect]
     Active Substance: TOPIRAMATE
     Indication: HEADACHE
     Dosage: 25 MILLIGRAM, BID
     Route: 065
  4. ACETAZOLAMIDE. [Suspect]
     Active Substance: ACETAZOLAMIDE
     Indication: IDIOPATHIC INTRACRANIAL HYPERTENSION
     Dosage: 2000 MILLIGRAM DAILY IN DIVIDED DOSES IN PREVIOUS YEARS
     Route: 065
  5. ACETAZOLAMIDE. [Suspect]
     Active Substance: ACETAZOLAMIDE
     Dosage: 1500 MILLIGRAM PER DAY, (DOSE WAS INCREASED)
     Route: 065
  6. TOPIRAMATE. [Suspect]
     Active Substance: TOPIRAMATE
     Indication: IDIOPATHIC INTRACRANIAL HYPERTENSION
     Dosage: 75 MILLIGRAM, BID, SIX YEARS BEFORE
     Route: 065

REACTIONS (8)
  - Metabolic acidosis [Unknown]
  - Tachypnoea [Unknown]
  - Hypophosphataemia [Unknown]
  - Hyperventilation [Unknown]
  - Off label use [Unknown]
  - Dyspnoea [Recovered/Resolved]
  - Drug ineffective [Unknown]
  - Respiratory alkalosis [Unknown]
